FAERS Safety Report 10876554 (Version 2)
Quarter: 2015Q1

REPORT INFORMATION
  Report Type: Spontaneous
  Country: US (occurrence: US)
  Receive Date: 20150301
  Receipt Date: 20150315
  Transmission Date: 20150721
  Serious: No
  Sender: FDA-Public Use
  Company Number: US-ASTRAZENECA-2015SE16077

PATIENT
  Age: 79 Year
  Sex: Female
  Weight: 56.2 kg

DRUGS (2)
  1. SYMBICORT [Suspect]
     Active Substance: BUDESONIDE\FORMOTEROL FUMARATE DIHYDRATE
     Indication: PULMONARY FIBROSIS
     Dosage: 80/4.5 1 PUFF DAILY
     Route: 055
     Dates: start: 20150211, end: 20150215
  2. SYMBICORT [Suspect]
     Active Substance: BUDESONIDE\FORMOTEROL FUMARATE DIHYDRATE
     Indication: PULMONARY FIBROSIS
     Dosage: 80/4.5 2 PUFFS DAILY
     Route: 055
     Dates: start: 20150210, end: 20150210

REACTIONS (16)
  - Drug intolerance [Unknown]
  - Malaise [Unknown]
  - Intentional product misuse [Unknown]
  - Dizziness [Unknown]
  - Dyspnoea [Recovering/Resolving]
  - Pruritus generalised [Recovering/Resolving]
  - Throat irritation [Recovering/Resolving]
  - Adverse drug reaction [None]
  - Off label use [Unknown]
  - Eye movement disorder [Unknown]
  - Malaise [Unknown]
  - Product use issue [Unknown]
  - Cough [Recovered/Resolved]
  - Somnolence [Unknown]
  - Abnormal behaviour [Recovered/Resolved]
  - Fatigue [Unknown]

NARRATIVE: CASE EVENT DATE: 20150210
